FAERS Safety Report 15223481 (Version 1)
Quarter: 2018Q3

REPORT INFORMATION
  Report Type: Spontaneous
  Country: US (occurrence: US)
  Receive Date: 20180731
  Receipt Date: 20180731
  Transmission Date: 20181010
  Serious: No
  Sender: FDA-Public Use
  Company Number: US-ENDO PHARMACEUTICALS INC-2018-034710

PATIENT
  Age: 51 Year
  Sex: Male
  Weight: 80.27 kg

DRUGS (3)
  1. TESTOPEL [Suspect]
     Active Substance: TESTOSTERONE
     Dosage: 900 MG (12 PELLETS), UNKNOWN
     Route: 058
  2. TESTOPEL [Suspect]
     Active Substance: TESTOSTERONE
     Indication: BLOOD TESTOSTERONE DECREASED
     Dosage: 900 MG (12 PELLETS), UNKNOWN
     Route: 058
     Dates: start: 20180308
  3. TESTOPEL [Suspect]
     Active Substance: TESTOSTERONE
     Dosage: 900 MG (12 PELLETS), UNKNOWN
     Route: 058
     Dates: start: 2017

REACTIONS (4)
  - Drug ineffective [Unknown]
  - Expired product administered [Unknown]
  - Blood testosterone decreased [Unknown]
  - Prescribed overdose [Unknown]

NARRATIVE: CASE EVENT DATE: 20180308
